FAERS Safety Report 5844121-5 (Version None)
Quarter: 2008Q3

REPORT INFORMATION
  Report Type: 
  Country: None (occurrence: None)
  Receive Date: 20080813
  Receipt Date: 20080807
  Transmission Date: 20090109
  Serious: Yes (Death, Hospitalization)
  Sender: FDA-Public Use
  Company Number: US-ALLERGAN-0809148US

PATIENT
  Sex: Female

DRUGS (2)
  1. BOTOX [Suspect]
     Indication: MUSCLE SPASTICITY
     Dosage: 100 UNITS, SINGLE
     Route: 030
     Dates: start: 20080529, end: 20080529
  2. NITROUS OXIDE [Concomitant]
     Indication: SEDATION
     Dosage: UNK, SINGLE
     Dates: start: 20080529, end: 20080529

REACTIONS (3)
  - HYPOVOLAEMIC SHOCK [None]
  - PNEUMONIA STAPHYLOCOCCAL [None]
  - RESPIRATORY FAILURE [None]
